FAERS Safety Report 15222907 (Version 1)
Quarter: 2018Q3

REPORT INFORMATION
  Report Type: Spontaneous
  Country: US (occurrence: US)
  Receive Date: 20180705
  Receipt Date: 20180705
  Transmission Date: 20181010
  Serious: No
  Sender: FDA-Public Use
  Company Number: None

PATIENT
  Age: 30 Year
  Sex: Male

DRUGS (1)
  1. LISTERINE HEALTHY WHITE ANTICAVITY FLUORIDE GENTLE CLEAN MINT [Suspect]
     Active Substance: SODIUM FLUORIDE

REACTIONS (1)
  - Mouth ulceration [None]
